FAERS Safety Report 7943545-X (Version None)
Quarter: 2011Q4

REPORT INFORMATION
  Report Type: 
  Country: None (occurrence: None)
  Receive Date: 20111128
  Receipt Date: 20111118
  Transmission Date: 20120403
  Serious: Yes (Other)
  Sender: FDA-Public Use
  Company Number: PHHY2011US101650

PATIENT
  Age: 15 Month
  Sex: Male

DRUGS (1)
  1. ONDANSETRON [Suspect]
     Dosage: 18 DF, (4 AND 8 MG TABLETS)
     Route: 048

REACTIONS (7)
  - TACHYCARDIA [None]
  - ACCIDENTAL DRUG INTAKE BY CHILD [None]
  - SOMNOLENCE [None]
  - AGITATION [None]
  - FLUSHING [None]
  - IRRITABILITY [None]
  - ELECTROCARDIOGRAM QT PROLONGED [None]
